FAERS Safety Report 6226951-3 (Version None)
Quarter: 2009Q2

REPORT INFORMATION
  Report Type: 
  Country: None (occurrence: None)
  Receive Date: 20090610
  Receipt Date: 20090602
  Transmission Date: 20091009
  Serious: Yes (Hospitalization)
  Sender: FDA-Public Use
  Company Number: JP-WYE-H01829207

PATIENT
  Age: 58 Year
  Sex: Male

DRUGS (11)
  1. MYLOTARG [Suspect]
     Indication: ACUTE MYELOID LEUKAEMIA RECURRENT
     Dosage: 9 MG/M^2 1X PER 1 DAY INTRAVENOUS DRIP
     Route: 041
     Dates: start: 20070419, end: 20070419
  2. MYLOTARG [Suspect]
     Indication: ACUTE MYELOID LEUKAEMIA RECURRENT
     Dosage: 9 MG/M^2 1X PER 1 DAY INTRAVENOUS DRIP
     Route: 041
     Dates: start: 20070502, end: 20070502
  3. URSO (URSODEOXYCHOLIC ACID) [Concomitant]
  4. VFEND [Concomitant]
  5. CIPRO [Concomitant]
  6. ENTERONON (LACTOBACILLUS ACIDOPHILUS) [Concomitant]
  7. MUCOSTA (REBAMIPIDE) [Concomitant]
  8. FAMOTIDINE [Concomitant]
  9. SOLITA T (ELECTROLYTES NOS) [Concomitant]
  10. LACTATED RINGER'S [Concomitant]
  11. HEPARIN [Concomitant]

REACTIONS (12)
  - ANAEMIA [None]
  - COAGULOPATHY [None]
  - HYPOKALAEMIA [None]
  - ILEUS PARALYTIC [None]
  - LIVER DISORDER [None]
  - NEUTROPHIL COUNT DECREASED [None]
  - OEDEMA [None]
  - PERFORMANCE STATUS DECREASED [None]
  - PLATELET COUNT DECREASED [None]
  - PNEUMONIA BACTERIAL [None]
  - PNEUMONIA FUNGAL [None]
  - WHITE BLOOD CELL COUNT DECREASED [None]
